FAERS Safety Report 9408281 (Version 2)
Quarter: 2013Q3

REPORT INFORMATION
  Report Type: Spontaneous
  Country: US (occurrence: US)
  Receive Date: 20130718
  Receipt Date: 20130722
  Transmission Date: 20140515
  Serious: Yes (Death, Hospitalization)
  Sender: FDA-Public Use
  Company Number: PHHY2013US075351

PATIENT
  Age: 28 Year
  Sex: Female
  Weight: 70 kg

DRUGS (8)
  1. METAXALONE [Suspect]
     Indication: LIGAMENT SPRAIN
     Dosage: 800 MG, TID
  2. METAXALONE [Suspect]
     Indication: CONTUSION
  3. METHOCARBAMOL [Suspect]
     Indication: LIGAMENT SPRAIN
     Dosage: 750 MG, QID
  4. METHOCARBAMOL [Suspect]
     Indication: CONTUSION
  5. IBUPROFEN [Suspect]
     Indication: LIGAMENT SPRAIN
     Dosage: 800 MG, TID
  6. IBUPROFEN [Suspect]
     Indication: CONTUSION
  7. VALDECOXIB [Suspect]
     Dosage: 10 MG DAILY
  8. CYCLOBENZAPRINE [Concomitant]
     Dosage: 10 MG, UNK

REACTIONS (17)
  - Haemorrhage intracranial [Fatal]
  - Cerebral haemorrhage [Fatal]
  - Diabetes mellitus [Fatal]
  - Hyperglycaemia [Fatal]
  - Hypertension [Fatal]
  - Respiratory failure [Fatal]
  - Renal failure [Fatal]
  - Cardiomyopathy [Fatal]
  - Coma [Unknown]
  - Hyperventilation [Fatal]
  - Abdominal pain upper [Unknown]
  - Vomiting [Unknown]
  - Abdominal pain [Unknown]
  - Gastritis [Unknown]
  - Dizziness [Unknown]
  - Menorrhagia [Unknown]
  - Palpitations [Unknown]
